FAERS Safety Report 8906941 (Version 1)
Quarter: 2012Q4

REPORT INFORMATION
  Report Type: 
  Country: US (occurrence: US)
  Receive Date: 20121113
  Receipt Date: 20121113
  Transmission Date: 20130627
  Serious: No
  Sender: FDA-Public Use
  Company Number: US-AMGEN-USASP2012010773

PATIENT
  Age: 51 Year
  Sex: Female
  Weight: 86.17 kg

DRUGS (8)
  1. ENBREL [Suspect]
     Indication: PRODUCT USED FOR UNKNOWN INDICATION
     Dosage: 50 mg, qwk
     Route: 058
  2. PLAQUENIL                          /00072602/ [Concomitant]
     Dosage: 200 mg, UNK
  3. METHOTREXATE [Concomitant]
     Dosage: 2.5 mg, UNK
  4. FOLIC ACID [Concomitant]
     Dosage: 1 mg, UNK
  5. HYDROCHLOROTH [Concomitant]
     Dosage: 25 mg, UNK
  6. NEXIUM                             /01479302/ [Concomitant]
     Dosage: 20 mg, UNK
  7. KLOR-CON M15 [Concomitant]
     Dosage: UNK
  8. VITAMIN D /00107901/ [Concomitant]
     Dosage: 400 UNK, UNK

REACTIONS (1)
  - Oral herpes [Unknown]
